FAERS Safety Report 9756001 (Version 2)
Quarter: 2014Q1

REPORT INFORMATION
  Report Type: Spontaneous
  Country: US (occurrence: US)
  Receive Date: 20131213
  Receipt Date: 20140221
  Transmission Date: 20141002
  Serious: Yes (Death)
  Sender: FDA-Public Use
  Company Number: US-GLAXOSMITHKLINE-A1053223A

PATIENT
  Age: 70 Year
  Sex: Male

DRUGS (12)
  1. HYCAMTIN [Suspect]
     Indication: SMALL CELL LUNG CANCER
     Dosage: 3.25MG PER DAY
     Route: 048
     Dates: start: 20130724, end: 20131202
  2. ALBUTEROL [Concomitant]
  3. BENADRYL [Concomitant]
  4. CALCIUM [Concomitant]
  5. COUMADIN [Concomitant]
  6. FLOMAX [Concomitant]
  7. POTASSIUM [Concomitant]
  8. PRILOSEC [Concomitant]
  9. COMPAZINE [Concomitant]
  10. SPIRIVA [Concomitant]
  11. TESSALON [Concomitant]
  12. VITAMIN B12 [Concomitant]

REACTIONS (1)
  - Death [Fatal]
